FAERS Safety Report 9124604 (Version 1)
Quarter: 2013Q1

REPORT INFORMATION
  Report Type: Other
  Country: GB (occurrence: GB)
  Receive Date: 20130227
  Receipt Date: 20130227
  Transmission Date: 20140127
  Serious: Yes (Other)
  Sender: FDA-Public Use
  Company Number: GB-WATSON-2013-02882

PATIENT
  Age: 34 Year
  Sex: Female

DRUGS (1)
  1. SODIUM VALPROATE (UNKNOWN) [Suspect]
     Indication: EPILEPSY
     Dosage: 500 MG, BID
     Route: 048
     Dates: start: 20120824

REACTIONS (2)
  - Epilepsy [Unknown]
  - Condition aggravated [Unknown]
